FAERS Safety Report 18748606 (Version 5)
Quarter: 2021Q1

REPORT INFORMATION
  Report Type: Spontaneous
  Country: DE (occurrence: DE)
  Receive Date: 20210116
  Receipt Date: 20210302
  Transmission Date: 20210419
  Serious: Yes (Hospitalization, Other)
  Sender: FDA-Public Use
  Company Number: DE-AMGEN-DEUSP2021003104

PATIENT
  Age: 35 Year
  Sex: Male
  Weight: 67 kg

DRUGS (3)
  1. NEUPOGEN [Suspect]
     Active Substance: FILGRASTIM
     Indication: STEM CELL DONOR
     Dosage: 0.4 MILLILITER, QD (9.3 MCG/KG, NEUPOGEN 30; 0?0?1)
     Route: 058
     Dates: start: 20201204
  2. IBUPROFEN. [Concomitant]
     Active Substance: IBUPROFEN
     Indication: FEELING OF RELAXATION
     Dosage: 2 X 400 MILLIGRAM
     Dates: start: 20201206, end: 20201208
  3. NEUPOGEN [Suspect]
     Active Substance: FILGRASTIM
     Indication: HAEMATOPOIETIC STEM CELL MOBILISATION
     Dosage: 0.4 MILLILITER, QD (9.3 MCG/KG, NEUPOGEN 48; 1?0?0)
     Route: 058
     Dates: end: 20201208

REACTIONS (6)
  - Constipation [Recovered/Resolved]
  - Asthenia [Not Recovered/Not Resolved]
  - Myalgia [Not Recovered/Not Resolved]
  - Paraesthesia [Not Recovered/Not Resolved]
  - Abdominal distension [Recovered/Resolved]
  - Guillain-Barre syndrome [Not Recovered/Not Resolved]

NARRATIVE: CASE EVENT DATE: 202012
